FAERS Safety Report 24777360 (Version 1)
Quarter: 2024Q4

REPORT INFORMATION
  Report Type: Spontaneous
  Country: CN (occurrence: CN)
  Receive Date: 20241226
  Receipt Date: 20241226
  Transmission Date: 20250114
  Serious: Yes (Other)
  Sender: GE HEALTHCARE
  Company Number: CN-GE HEALTHCARE-2024CSU014774

PATIENT
  Age: 64 Year
  Sex: Male

DRUGS (2)
  1. OMNIPAQUE [Suspect]
     Active Substance: IOHEXOL
     Indication: Angiogram cerebral
     Dosage: 60 GM, TOTAL
     Route: 013
     Dates: start: 20241203, end: 20241203
  2. OMNIPAQUE [Suspect]
     Active Substance: IOHEXOL
     Indication: Cerebral artery stent insertion

REACTIONS (7)
  - Blood pressure fluctuation [Recovering/Resolving]
  - Dysphoria [Recovering/Resolving]
  - Staring [Recovering/Resolving]
  - Agnosia [Recovering/Resolving]
  - Nausea [Recovering/Resolving]
  - Vomiting [Recovering/Resolving]
  - Contrast encephalopathy [Recovering/Resolving]

NARRATIVE: CASE EVENT DATE: 20241204
